FAERS Safety Report 6285891-4 (Version None)
Quarter: 2009Q3

REPORT INFORMATION
  Report Type: 
  Country: None (occurrence: None)
  Receive Date: 20090728
  Receipt Date: 20090717
  Transmission Date: 20100115
  Serious: Yes (Hospitalization, Other)
  Sender: FDA-Public Use
  Company Number: US-ELI_LILLY_AND_COMPANY-US200907003843

PATIENT
  Sex: Male

DRUGS (8)
  1. BYETTA [Suspect]
     Indication: TYPE 2 DIABETES MELLITUS
     Dosage: 5 UG, 2/D
     Route: 058
     Dates: start: 20060101
  2. BYETTA [Suspect]
     Dosage: 10 UG, 2/D
     Route: 058
  3. OMEPRAZOLE [Concomitant]
     Indication: GASTRIC DISORDER
     Dosage: UNK, UNKNOWN
  4. METOPROLOL TARTRATE [Concomitant]
     Indication: BLOOD PRESSURE
     Dosage: UNK, UNKNOWN
  5. ATACAND [Concomitant]
     Dosage: UNK, UNKNOWN
  6. GLUCOPHAGE [Concomitant]
     Indication: BLOOD GLUCOSE ABNORMAL
     Dosage: UNK, UNKNOWN
  7. VESICARE [Concomitant]
     Dosage: UNK, UNKNOWN
  8. DIURETICS [Concomitant]
     Dosage: UNK, UNKNOWN

REACTIONS (6)
  - ASTHENIA [None]
  - CEREBROVASCULAR ACCIDENT [None]
  - GAIT DISTURBANCE [None]
  - INTRACRANIAL ANEURYSM [None]
  - MEMORY IMPAIRMENT [None]
  - PROSTATIC DISORDER [None]
